FAERS Safety Report 9139700 (Version 1)
Quarter: 2013Q1

REPORT INFORMATION
  Report Type: Spontaneous
  Country: PT (occurrence: PT)
  Receive Date: 20130305
  Receipt Date: 20130305
  Transmission Date: 20140127
  Serious: Yes (Other)
  Sender: FDA-Public Use
  Company Number: PT-PFIZER INC-2013070063

PATIENT
  Age: 70 Year
  Sex: Male
  Weight: 77 kg

DRUGS (4)
  1. TORISEL [Suspect]
     Indication: METASTATIC RENAL CELL CARCINOMA
     Dosage: 25 MG, CYCLIC (EVERY 7 DAYS)
     Route: 042
     Dates: start: 20120914, end: 20120914
  2. RISIDON [Concomitant]
     Indication: DIABETES MELLITUS
     Dosage: 2000 MG, 1X/DAY
     Route: 048
  3. MICARDIS PLUS [Concomitant]
     Indication: HYPERTENSION
     Dosage: 1 DF, 1X/DAY
     Route: 048
  4. PANTOPRAZOL [Concomitant]
     Indication: PEPTIC ULCER
     Dosage: 20 MG, 1X/DAY
     Route: 048

REACTIONS (5)
  - Hypersensitivity [Recovered/Resolved]
  - Pain in extremity [Recovered/Resolved]
  - Back pain [Recovered/Resolved]
  - Back pain [Recovered/Resolved]
  - Acute tonsillitis [Unknown]
